FAERS Safety Report 6659486-4 (Version None)
Quarter: 2010Q1

REPORT INFORMATION
  Report Type: 
  Country: None (occurrence: None)
  Receive Date: 20100330
  Receipt Date: 20091218
  Transmission Date: 20100710
  Serious: Yes (Other)
  Sender: FDA-Public Use
  Company Number: JP-JNJFOC-20090605120

PATIENT
  Sex: Male

DRUGS (9)
  1. CRAVIT [Suspect]
     Indication: BRONCHITIS
     Route: 048
  2. CRAVIT [Suspect]
     Indication: COLITIS
     Route: 048
  3. LOXONIN [Concomitant]
     Route: 048
  4. BIOFERMIN R [Concomitant]
     Route: 048
  5. ALBUMIN TANNATE [Concomitant]
     Route: 048
  6. ASPIRIN [Concomitant]
     Route: 065
  7. FOSMICIN S [Concomitant]
     Route: 041
  8. PRIMPERAN INJ [Concomitant]
     Route: 041
  9. NEUROTROPIN [Concomitant]
     Route: 041

REACTIONS (2)
  - DRUG ERUPTION [None]
  - DYSPNOEA [None]
